FAERS Safety Report 17412653 (Version 1)
Quarter: 2020Q1

REPORT INFORMATION
  Report Type: Spontaneous
  Country: US (occurrence: US)
  Receive Date: 20200212
  Receipt Date: 20200212
  Transmission Date: 20200409
  Serious: Yes (Disabling)
  Sender: FDA-Public Use
  Company Number: None

PATIENT
  Age: 75 Year
  Sex: Female
  Weight: 67.5 kg

DRUGS (1)
  1. CORTISPORIN (HYDROCORTISONE ACETATE\NEOMYCIN SULFATE\POLYMYXIN B SULFATE) [Suspect]
     Active Substance: HYDROCORTISONE\HYDROCORTISONE ACETATE\NEOMYCIN SULFATE\POLYMYXIN B SULFATE
     Indication: EAR INFECTION
     Dosage: ?          OTHER FREQUENCY:4 TIMES A DAY;?
     Route: 001
     Dates: start: 20191228, end: 20200106

REACTIONS (2)
  - Deafness neurosensory [None]
  - Deafness [None]

NARRATIVE: CASE EVENT DATE: 20200106
